FAERS Safety Report 5483453-X (Version None)
Quarter: 2007Q4

REPORT INFORMATION
  Report Type: 
  Country: None (occurrence: None)
  Receive Date: 20071009
  Receipt Date: 20071001
  Transmission Date: 20080405
  Serious: Yes (Other)
  Sender: FDA-Public Use
  Company Number: 2007SP017730

PATIENT
  Age: 62 Year
  Sex: Male

DRUGS (3)
  1. PEG-INTRON [Suspect]
     Indication: HEPATITIS C
     Dosage: 0.5 ML; 0.4 ML;
     Dates: start: 20070402
  2. REBETOL [Suspect]
     Indication: HEPATITIS C
     Dosage: ;PO
     Route: 048
     Dates: start: 20070402
  3. COUMADIN [Concomitant]

REACTIONS (7)
  - BLINDNESS UNILATERAL [None]
  - CATARACT OPERATION [None]
  - DEPRESSION [None]
  - DISEASE PROGRESSION [None]
  - INFLUENZA LIKE ILLNESS [None]
  - NEUTROPHIL COUNT DECREASED [None]
  - WHITE BLOOD CELL COUNT DECREASED [None]
